FAERS Safety Report 7645807-2 (Version None)
Quarter: 2011Q3

REPORT INFORMATION
  Report Type: 
  Country: None (occurrence: None)
  Receive Date: 20110729
  Receipt Date: 20110726
  Transmission Date: 20111222
  Serious: Yes (Other)
  Sender: FDA-Public Use
  Company Number: JP-AMGEN-JPNCT2011022432

PATIENT
  Age: 40 Year
  Sex: Female

DRUGS (4)
  1. DEXAMETHASONE SODIUM PHOSPHATE [Concomitant]
     Dosage: UNK UNK, QD
     Route: 042
     Dates: start: 20081215, end: 20100705
  2. AROMASIN [Concomitant]
     Dosage: UNK
     Dates: start: 20100706, end: 20100825
  3. DENOSUMAB [Suspect]
     Indication: METASTASES TO BONE
     Dosage: UNK
     Dates: start: 20090810, end: 20100705
  4. LOXONIN [Concomitant]
     Dosage: 60 MG, QD
     Route: 048

REACTIONS (1)
  - OSTEOMYELITIS [None]
